FAERS Safety Report 23771203 (Version 3)
Quarter: 2024Q3

REPORT INFORMATION
  Report Type: Spontaneous
  Country: US (occurrence: US)
  Receive Date: 20240423
  Receipt Date: 20240718
  Transmission Date: 20241017
  Serious: No
  Sender: LEO PHARM
  Company Number: US-LEO Pharma-369626

PATIENT
  Age: 53 Year
  Sex: Male

DRUGS (1)
  1. ADBRY [Suspect]
     Active Substance: TRALOKINUMAB-LDRM
     Indication: Dermatitis atopic
     Dosage: 600 MG ON DAY 1
     Route: 058
     Dates: start: 202403

REACTIONS (2)
  - Ocular hyperaemia [Unknown]
  - Conjunctivitis [Unknown]
